FAERS Safety Report 21972432 (Version 1)
Quarter: 2023Q1

REPORT INFORMATION
  Report Type: Spontaneous
  Country: BR (occurrence: BR)
  Receive Date: 20230209
  Receipt Date: 20230209
  Transmission Date: 20230417
  Serious: Yes (Hospitalization)
  Sender: FDA-Public Use
  Company Number: BR-TAKEDA-2023TUS014048

PATIENT
  Sex: Female

DRUGS (1)
  1. MESALAMINE [Suspect]
     Active Substance: MESALAMINE
     Indication: Diverticulitis
     Dosage: 800 MILLIGRAM, QD
     Route: 048
     Dates: start: 202203

REACTIONS (5)
  - Vomiting [Unknown]
  - Product physical issue [Unknown]
  - Poor quality product administered [Unknown]
  - Malaise [Unknown]
  - Pain [Unknown]
